FAERS Safety Report 4828589-9 (Version None)
Quarter: 2005Q4

REPORT INFORMATION
  Report Type: 
  Country: None (occurrence: None)
  Receive Date: 20051115
  Receipt Date: 20051104
  Transmission Date: 20060501
  Serious: Yes (Hospitalization)
  Sender: FDA-Public Use
  Company Number: US-JNJFOC-20051102088

PATIENT
  Sex: Male
  Weight: 77.11 kg

DRUGS (6)
  1. DURAGESIC-100 [Suspect]
     Route: 062
     Dates: start: 20040101
  2. DURAGESIC-100 [Suspect]
     Route: 062
     Dates: start: 20040101
  3. DURAGESIC-100 [Suspect]
     Route: 062
     Dates: start: 20040101
  4. LIPITOR [Concomitant]
     Route: 048
     Dates: start: 20010101
  5. ASPIRIN [Concomitant]
     Route: 048
     Dates: start: 20010101
  6. NEURONTIN [Concomitant]
     Route: 048
     Dates: start: 20020101

REACTIONS (4)
  - BACK PAIN [None]
  - DRUG INEFFECTIVE [None]
  - EXOSTOSIS [None]
  - INCORRECT DOSE ADMINISTERED [None]
